FAERS Safety Report 21330054 (Version 5)
Quarter: 2024Q1

REPORT INFORMATION
  Report Type: Report from Study
  Country: US (occurrence: US)
  Receive Date: 20220913
  Receipt Date: 20240308
  Transmission Date: 20240410
  Serious: Yes (Hospitalization, Other)
  Sender: FDA-Public Use
  Company Number: US-JAZZ-2022-US-026922

PATIENT
  Sex: Female

DRUGS (1)
  1. XYREM [Suspect]
     Active Substance: SODIUM OXYBATE
     Indication: Narcolepsy
     Dosage: 3.75 GRAM, QD
     Route: 048

REACTIONS (5)
  - COVID-19 [Unknown]
  - Seizure [Recovered/Resolved]
  - Transient ischaemic attack [Unknown]
  - Electrolyte imbalance [Unknown]
  - Drug intolerance [Unknown]
